FAERS Safety Report 5512478-0 (Version None)
Quarter: 2007Q4

REPORT INFORMATION
  Report Type: 
  Country: None (occurrence: None)
  Receive Date: 20071112
  Receipt Date: 20070425
  Transmission Date: 20080405
  Serious: No
  Sender: FDA-Public Use
  Company Number: A0648783A

PATIENT
  Sex: Male

DRUGS (1)
  1. AVANDAMET [Suspect]
     Indication: DRUG USE FOR UNKNOWN INDICATION
     Dosage: .5TAB UNKNOWN
     Route: 048

REACTIONS (2)
  - DRUG INEFFECTIVE [None]
  - DRUG PRESCRIBING ERROR [None]
